FAERS Safety Report 7244670-1 (Version None)
Quarter: 2011Q1

REPORT INFORMATION
  Report Type: 
  Country: None (occurrence: None)
  Receive Date: 20110125
  Receipt Date: 20101129
  Transmission Date: 20110831
  Serious: No
  Sender: FDA-Public Use
  Company Number: US-MYLANLABS-2010S1021963

PATIENT
  Age: 90 Year
  Sex: Female

DRUGS (3)
  1. PHENYTOIN [Concomitant]
     Dosage: SUSPENSION
     Route: 048
  2. CLONIDINE [Suspect]
     Dosage: QW
     Route: 062
     Dates: start: 20101102
  3. LISINOPRIL [Concomitant]
     Route: 048

REACTIONS (1)
  - APPLICATION SITE PRURITUS [None]
